FAERS Safety Report 9527948 (Version 2)
Quarter: 2013Q3

REPORT INFORMATION
  Report Type: Spontaneous
  Country: US (occurrence: US)
  Receive Date: 20130917
  Receipt Date: 20130917
  Transmission Date: 20140515
  Serious: Yes (Hospitalization, Other)
  Sender: FDA-Public Use
  Company Number: US-LUNDBECK-DKLU1093141

PATIENT
  Age: 5 Year
  Sex: Male
  Weight: 16.9 kg

DRUGS (18)
  1. SABRIL (FOR ORAL SOLUTION) [Suspect]
     Indication: GRAND MAL CONVULSION
     Dosage: MIX 2 PACKETS IN 20 ML H20
     Route: 048
  2. CLONAZEPAM [Concomitant]
     Indication: PRODUCT USED FOR UNKNOWN INDICATION
     Route: 048
  3. VIMPAT [Concomitant]
     Indication: PRODUCT USED FOR UNKNOWN INDICATION
     Route: 048
  4. VIMPAT [Concomitant]
     Route: 048
  5. VIMPAT [Concomitant]
  6. KEPPRA [Concomitant]
     Indication: PRODUCT USED FOR UNKNOWN INDICATION
  7. KEPPRA [Concomitant]
  8. KEPPRA [Concomitant]
     Route: 048
  9. CALCIUM [Concomitant]
     Indication: PRODUCT USED FOR UNKNOWN INDICATION
  10. NASONEX [Concomitant]
     Indication: PRODUCT USED FOR UNKNOWN INDICATION
     Dosage: 1 PUFF
     Route: 050
  11. ATROVENT HFA [Concomitant]
     Indication: WHEEZING
  12. ATROVENT HFA [Concomitant]
     Indication: COUGH
  13. MIRALAX [Concomitant]
     Indication: CONSTIPATION
     Dosage: 3 TEASPOONS
  14. ZYRTEC [Concomitant]
     Indication: PRODUCT USED FOR UNKNOWN INDICATION
     Route: 048
  15. ROBINUL [Concomitant]
     Indication: PRODUCT USED FOR UNKNOWN INDICATION
     Route: 048
  16. BENADRYL [Concomitant]
     Indication: PRODUCT USED FOR UNKNOWN INDICATION
  17. ZANTAC [Concomitant]
     Indication: PRODUCT USED FOR UNKNOWN INDICATION
     Route: 048
  18. DIASTAT [Concomitant]
     Indication: CONVULSION
     Route: 050

REACTIONS (6)
  - Pneumonia moraxella [Recovered/Resolved]
  - Respiratory failure [Recovered/Resolved]
  - Anaemia [Recovered/Resolved]
  - Status epilepticus [Recovering/Resolving]
  - Convulsion [Recovering/Resolving]
  - Upper respiratory tract infection [Recovered/Resolved]
